FAERS Safety Report 5719037-5 (Version None)
Quarter: 2008Q2

REPORT INFORMATION
  Report Type: 
  Country: None (occurrence: None)
  Receive Date: 20080423
  Receipt Date: 20080411
  Transmission Date: 20081010
  Serious: Yes (Death)
  Sender: FDA-Public Use
  Company Number: 2008-01028

PATIENT
  Age: 83 Year
  Sex: Male
  Weight: 60 kg

DRUGS (2)
  1. VELCADE [Suspect]
     Indication: MULTIPLE MYELOMA
     Dosage: 1.3 MG/M2, INTRAVENOUS
     Route: 042
     Dates: start: 20080221, end: 20080303
  2. DEXAMETHASONE [Concomitant]

REACTIONS (2)
  - FALL [None]
  - SUDDEN DEATH [None]
